FAERS Safety Report 4560781-3 (Version None)
Quarter: 2005Q1

REPORT INFORMATION
  Report Type: 
  Country: None (occurrence: None)
  Receive Date: 20050121
  Receipt Date: 20050106
  Transmission Date: 20050727
  Serious: Yes (Death)
  Sender: FDA-Public Use
  Company Number: S05-ISR-00201-01

PATIENT
  Age: 24 Year
  Sex: Female

DRUGS (4)
  1. ESCITALOPRAM OXALATE [Suspect]
     Indication: PANIC DISORDER
     Dosage: 10 MG QD PO
     Route: 048
     Dates: start: 20041203, end: 20041230
  2. CLONAZEPAM [Concomitant]
  3. CALCIUM (CALCIUM) [Concomitant]
  4. NORMITEN (ATENOLOL) [Concomitant]

REACTIONS (3)
  - ABDOMINAL PAIN UPPER [None]
  - HEPATITIS FULMINANT [None]
  - PYREXIA [None]
